FAERS Safety Report 9466905 (Version 2)
Quarter: 2013Q3

REPORT INFORMATION
  Report Type: Spontaneous
  Country: US (occurrence: US)
  Receive Date: 20130820
  Receipt Date: 20130820
  Transmission Date: 20140515
  Serious: Yes (Hospitalization)
  Sender: FDA-Public Use
  Company Number: US-UCBSA-088223

PATIENT
  Age: 62 Year
  Sex: Male
  Weight: 106 kg

DRUGS (31)
  1. VIMPAT [Suspect]
     Indication: CONVULSION
     Dosage: STRENGTH 200 MG
     Route: 048
  2. VIMPAT [Suspect]
     Indication: EPILEPSY
     Dosage: STRENGTH 200 MG
     Route: 048
  3. KEPPRA [Suspect]
     Indication: CONVULSION
     Dosage: STRENGHT 500 MG 3 TABLETS 2 X DAILY; 9AM AND 9PM
     Route: 048
  4. KEPPRA [Suspect]
     Indication: EPILEPSY
     Dosage: STRENGHT 500 MG 3 TABLETS 2 X DAILY; 9AM AND 9PM
     Route: 048
  5. FOLIC ACID [Concomitant]
     Indication: RENAL DISORDER
  6. MELOXICAM [Concomitant]
     Indication: ARTHRITIS
     Dosage: 1 TABLET (15 MG) EVERY DAY AS NEEDED
     Route: 048
  7. LOVASTATIN [Concomitant]
     Dosage: EVERY DAY WITH EVENING MEAL
     Route: 048
  8. METHOTREXATE [Concomitant]
     Indication: LEUKAEMIA GRANULOCYTIC
     Dosage: 5 TABLET (12.5 MG) EVERY WEEK
     Route: 048
  9. PREDNISONE [Concomitant]
     Indication: RENAL DISORDER
     Route: 048
  10. PREVACID [Concomitant]
     Indication: GASTROOESOPHAGEAL REFLUX DISEASE
     Dosage: 1 CAPSULE EVERYDAY BEFORE A MEAL
     Route: 048
  11. ARTIFICIAL TEARS [Concomitant]
     Indication: DRY EYE
     Dosage: 2 DROPS TWICE EVERYDAY
  12. CLARITIN [Concomitant]
     Indication: HYPERSENSITIVITY
     Route: 048
  13. FLONASE [Concomitant]
     Indication: SINUSITIS
     Dosage: SPRAY BY INTRANASAL ROUTE EVERYDAY IN EACH NOSTRILS
  14. IRON [Concomitant]
  15. DULCOLAX [Concomitant]
     Route: 048
  16. LISINOPRIL [Concomitant]
     Indication: HYPERTENSION
     Route: 048
  17. MAGNESIUM [Concomitant]
  18. MULTI VITAMIN [Concomitant]
     Dosage: 1 TABLET EVERY DAY WITH FOOD
     Route: 048
  19. MILEPEX [Concomitant]
     Indication: RESTLESS LEGS SYNDROME
  20. VD [Concomitant]
     Dosage: STRENGTH 5000 MG
  21. CALCIUM 600 VD [Concomitant]
     Dosage: 600 MG CALCIUM (1500 MG) - 400 UNIT
  22. ALOE VERA [Concomitant]
     Dosage: ALOE VERA JUICE 20G AM
  23. COCONUT OIL [Concomitant]
     Dosage: 2 TBS DAILY
  24. ALENE [Concomitant]
     Indication: PAIN
  25. TYLENOL [Concomitant]
     Dosage: 1 TABLET (325 MG) EVERY 4 HOURS AS NEEDED
     Route: 048
  26. ASPIRIN [Concomitant]
     Indication: MYOCARDIAL INFARCTION
     Route: 048
  27. ASPIRIN [Concomitant]
     Indication: CEREBROVASCULAR ACCIDENT
     Route: 048
  28. ALEVE [Concomitant]
     Indication: PAIN
     Dosage: 220 MG AS NEEDED
  29. VITAMIN D [Concomitant]
     Dosage: 5000 UNIT; 1 TABLET EVERYDAY
  30. FERROUS SULFATE [Concomitant]
     Route: 048
  31. MIRAPEX [Concomitant]
     Dosage: 0.5 MG ; 0.5 - 1 MG TABLET (0.5 MG) 2-3 HOURS BEFORE BEDTIME
     Route: 048

REACTIONS (3)
  - Cerebrovascular accident [Unknown]
  - Brain operation [Unknown]
  - Hypersensitivity [Unknown]
